FAERS Safety Report 9249468 (Version 1)
Quarter: 2013Q1

REPORT INFORMATION
  Report Type: Spontaneous
  Country: US (occurrence: None)
  Receive Date: 20130305
  Receipt Date: 20130305
  Transmission Date: 20140127
  Serious: Yes (Other)
  Sender: FDA-Public Use
  Company Number: 163-21880-12100813

PATIENT
  Age: 70 Year
  Sex: Male
  Weight: 73.48 kg

DRUGS (5)
  1. REVLIMID [Suspect]
     Indication: PLASMA CELL MYELOMA
     Dosage: 10 MG, 1 IN 1 D, PO
     Route: 048
     Dates: start: 201011
  2. SIMVASTATIN (SIMVASTATIN) [Concomitant]
  3. NIASPAN (NICOTINIC ACID [Concomitant]
  4. NEXIUM (ESOMEPRAZOLE [Concomitant]
  5. ASA (ACETYLSALICYLIC ACID) [Concomitant]

REACTIONS (2)
  - Muscle spasms [None]
  - Tremor [None]
